FAERS Safety Report 5717489-8 (Version None)
Quarter: 2008Q2

REPORT INFORMATION
  Report Type: 
  Country: None (occurrence: None)
  Receive Date: 20080425
  Receipt Date: 20080417
  Transmission Date: 20081010
  Serious: Yes (Other)
  Sender: FDA-Public Use
  Company Number: BE-BAYER-200810849GPV

PATIENT
  Age: 29 Year
  Sex: Female

DRUGS (2)
  1. BETASERON [Suspect]
     Indication: MULTIPLE SCLEROSIS
     Route: 058
     Dates: start: 20080102, end: 20080102
  2. BETASERON [Suspect]
     Route: 058
     Dates: start: 20080104, end: 20080107

REACTIONS (9)
  - ASTHENIA [None]
  - BACK PAIN [None]
  - FATIGUE [None]
  - INSOMNIA [None]
  - LOSS OF CONSCIOUSNESS [None]
  - NAUSEA [None]
  - NECK PAIN [None]
  - SYNCOPE VASOVAGAL [None]
  - VOMITING [None]
